FAERS Safety Report 6034739-1 (Version None)
Quarter: 2009Q1

REPORT INFORMATION
  Report Type: 
  Country: None (occurrence: None)
  Receive Date: 20090112
  Receipt Date: 20090105
  Transmission Date: 20090719
  Serious: Yes (Hospitalization)
  Sender: FDA-Public Use
  Company Number: US-JNJFOC-20090100970

PATIENT
  Age: 31 Year
  Sex: Female
  Weight: 113.4 kg

DRUGS (10)
  1. EXTRA STRENGTH TYLENOL [Suspect]
     Indication: VIRAL INFECTION
     Route: 048
  2. EXTRA STRENGTH TYLENOL [Suspect]
     Indication: PYREXIA
     Dosage: 1000 MG 3-4 TIMES A DAY
     Route: 048
  3. PROZAC [Concomitant]
     Indication: DEPRESSION
  4. METOPROLOL TARTRATE [Concomitant]
     Indication: HYPERTENSION
  5. POTASSIUM CHLORIDE [Concomitant]
     Indication: MINERAL SUPPLEMENTATION
  6. EFFEXOR XR [Concomitant]
     Indication: DEPRESSION
  7. ABILIFY [Concomitant]
     Indication: PSYCHOTIC DISORDER
  8. HYDROCHLOROTHIAZIDE [Concomitant]
     Indication: HYPERTENSION
  9. REMERON [Concomitant]
     Indication: DEPRESSION
  10. NEXIUM [Concomitant]
     Indication: GASTROOESOPHAGEAL REFLUX DISEASE

REACTIONS (3)
  - HEPATIC ENZYME INCREASED [None]
  - SKIN EXFOLIATION [None]
  - WEIGHT DECREASED [None]
